FAERS Safety Report 21292182 (Version 2)
Quarter: 2022Q4

REPORT INFORMATION
  Report Type: Spontaneous
  Country: US (occurrence: US)
  Receive Date: 20220905
  Receipt Date: 20221220
  Transmission Date: 20230113
  Serious: No
  Sender: FDA-Public Use
  Company Number: US-BRISTOL-MYERS SQUIBB COMPANY-2022-099442

PATIENT
  Age: 56 Year
  Sex: Female

DRUGS (2)
  1. ZEPOSIA [Suspect]
     Active Substance: OZANIMOD HYDROCHLORIDE
     Indication: Multiple sclerosis
     Route: 048
  2. DIAZEPAM [Concomitant]
     Active Substance: DIAZEPAM
     Indication: Seizure

REACTIONS (3)
  - White blood cell count decreased [Unknown]
  - Diarrhoea [Recovering/Resolving]
  - Abdominal pain upper [Unknown]
